FAERS Safety Report 10370339 (Version 2)
Quarter: 2014Q3

REPORT INFORMATION
  Report Type: Spontaneous
  Country: GB (occurrence: GB)
  Receive Date: 20140808
  Receipt Date: 20140916
  Transmission Date: 20150326
  Serious: Yes (Death, Hospitalization)
  Sender: FDA-Public Use
  Company Number: GB-JNJFOC-20140719745

PATIENT
  Age: 76 Year
  Sex: Male
  Weight: 66 kg

DRUGS (17)
  1. OMEPRAZOLE. [Concomitant]
     Active Substance: OMEPRAZOLE
     Route: 065
  2. ENZALUTAMIDE [Suspect]
     Active Substance: ENZALUTAMIDE
     Indication: PROSTATE CANCER METASTATIC
     Dosage: 75% DOSE
     Route: 065
     Dates: start: 20140404
  3. CLOPIDOGREL [Concomitant]
     Active Substance: CLOPIDOGREL BISULFATE
     Indication: MYOCARDIAL ISCHAEMIA
     Route: 065
  4. ADCAL D3 [Concomitant]
     Active Substance: CALCIUM CARBONATE\CHOLECALCIFEROL
     Route: 065
  5. ATORVASTATIN [Concomitant]
     Active Substance: ATORVASTATIN
     Indication: BLOOD CHOLESTEROL INCREASED
     Route: 065
  6. FLUTICASONE [Concomitant]
     Active Substance: FLUTICASONE\FLUTICASONE PROPIONATE
     Indication: CHRONIC OBSTRUCTIVE PULMONARY DISEASE
     Dosage: ^TI INN BD^
     Route: 065
  7. ZYTIGA [Suspect]
     Active Substance: ABIRATERONE ACETATE
     Indication: PROSTATE CANCER METASTATIC
     Dosage: ABIRATERONE ACETATE WAS TAKING  FOR PAST 2 AND HALF YEARS.
     Route: 048
     Dates: start: 201112, end: 201404
  8. PREDNISOLONE. [Concomitant]
     Active Substance: PREDNISOLONE
     Indication: PROSTATE CANCER METASTATIC
     Route: 065
  9. PREDNISOLONE. [Concomitant]
     Active Substance: PREDNISOLONE
     Indication: PROSTATE CANCER METASTATIC
     Route: 065
     Dates: start: 201112, end: 201404
  10. MOMETASONE [Concomitant]
     Active Substance: MOMETASONE
     Route: 045
  11. DOCETAXEL [Concomitant]
     Active Substance: DOCETAXEL
     Dosage: 10 CYCLES
     Route: 065
     Dates: start: 2011
  12. ZOLEDRONIC ACID. [Concomitant]
     Active Substance: ZOLEDRONIC ACID
     Route: 065
     Dates: start: 2011
  13. GOSERELIN [Concomitant]
     Active Substance: GOSERELIN
     Indication: PROSTATIC DISORDER
     Dosage: 3/12
     Route: 058
  14. ATORVASTATIN [Concomitant]
     Active Substance: ATORVASTATIN
     Indication: MYOCARDIAL ISCHAEMIA
     Route: 065
  15. CYCLIZINE [Concomitant]
     Active Substance: CYCLIZINE
     Indication: NAUSEA
     Dosage: PRN
     Route: 065
     Dates: start: 201406
  16. METOCLOPRAMIDE. [Concomitant]
     Active Substance: METOCLOPRAMIDE
     Route: 065
  17. ADIZEM XL [Concomitant]
     Indication: HYPERTENSION
     Route: 065

REACTIONS (5)
  - Cerebral haemorrhage [Fatal]
  - Hypertension [Unknown]
  - Muscular weakness [Unknown]
  - Hydrocephalus [Fatal]
  - Fatigue [Unknown]

NARRATIVE: CASE EVENT DATE: 20140703
